FAERS Safety Report 25087398 (Version 1)
Quarter: 2025Q1

REPORT INFORMATION
  Report Type: Report from Study
  Country: CO (occurrence: CO)
  Receive Date: 20250318
  Receipt Date: 20250318
  Transmission Date: 20250408
  Serious: Yes (Death, Hospitalization)
  Sender: RECORDATI
  Company Number: CO-RECORDATI RARE DISEASES-2025001666

PATIENT
  Age: 26 Year
  Sex: Female
  Weight: 42 kg

DRUGS (1)
  1. PANHEMATIN [Suspect]
     Active Substance: HEMIN
     Indication: Porphyria acute
     Route: 042
     Dates: start: 20240620

REACTIONS (2)
  - Death [Fatal]
  - Disease progression [Recovered/Resolved]

NARRATIVE: CASE EVENT DATE: 20250307
